FAERS Safety Report 9188153 (Version 2)
Quarter: 2013Q4

REPORT INFORMATION
  Report Type: Spontaneous
  Country: GB (occurrence: GB)
  Receive Date: 20130325
  Receipt Date: 20131008
  Transmission Date: 20140711
  Serious: Yes (Other)
  Sender: FDA-Public Use
  Company Number: PHHY2013GB026900

PATIENT
  Age: 59 Year
  Sex: 0
  Weight: 76 kg

DRUGS (2)
  1. ATORVASTATIN [Suspect]
     Indication: PROPHYLAXIS
     Dosage: 40 MG
     Route: 048
     Dates: start: 20130220, end: 20130223
  2. SITAGLIPTIN [Concomitant]
     Indication: DIABETES MELLITUS
     Dosage: 100 MG
     Route: 048

REACTIONS (2)
  - Myalgia [Recovered/Resolved]
  - Pain of skin [Recovered/Resolved]
